FAERS Safety Report 4448635-4 (Version None)
Quarter: 2004Q3

REPORT INFORMATION
  Report Type: 
  Country: None (occurrence: None)
  Receive Date: 20040909
  Receipt Date: 20040825
  Transmission Date: 20050211
  Serious: Yes (Life-Threatening, Hospitalization)
  Sender: FDA-Public Use
  Company Number: FR_040804599

PATIENT
  Age: 71 Year
  Sex: Female
  Weight: 92 kg

DRUGS (3)
  1. GEMZAR [Suspect]
     Indication: METASTASES TO LUNG
     Dosage: 900 MG/M2/2 OTHER
     Dates: start: 20030811, end: 20031229
  2. GEMZAR [Suspect]
     Indication: SARCOMA UTERUS
     Dosage: 900 MG/M2/2 OTHER
     Dates: start: 20030811, end: 20031229
  3. TAXOTERE [Concomitant]

REACTIONS (4)
  - ACUTE RESPIRATORY FAILURE [None]
  - BLOOD PH INCREASED [None]
  - FLUID RETENTION [None]
  - PLEURAL EFFUSION [None]
